FAERS Safety Report 9540167 (Version 1)
Quarter: 2013Q2

REPORT INFORMATION
  Report Type: Spontaneous
  Country: US (occurrence: None)
  Receive Date: 20130503
  Receipt Date: 20130503
  Transmission Date: 20140414
  Serious: No
  Sender: FDA-Public Use
  Company Number: 1000042449

PATIENT
  Age: 54 Year
  Sex: Male

DRUGS (1)
  1. DALIRESP (ROFLUMILAST) (500 MICROGRAM, TABLETS) [Suspect]
     Indication: CHRONIC OBSTRUCTIVE PULMONARY DISEASE
     Route: 048
     Dates: start: 201210, end: 201301

REACTIONS (3)
  - Cough [None]
  - Chest discomfort [None]
  - Dyspnoea [None]
